FAERS Safety Report 20212310 (Version 1)
Quarter: 2021Q4

REPORT INFORMATION
  Report Type: Spontaneous
  Country: US (occurrence: None)
  Receive Date: 20211221
  Receipt Date: 20211221
  Transmission Date: 20220303
  Serious: No
  Sender: FDA-Public Use
  Company Number: 2021A853651

PATIENT
  Age: 871 Month
  Sex: Female
  Weight: 113.4 kg

DRUGS (1)
  1. SYMBICORT [Suspect]
     Active Substance: BUDESONIDE\FORMOTEROL FUMARATE DIHYDRATE
     Indication: Hypersensitivity pneumonitis
     Dosage: SYMBICORT 160/4.5 MCG 2 INHALATIONS TWICE A DAY
     Route: 055
     Dates: start: 201904

REACTIONS (4)
  - Memory impairment [Unknown]
  - Intentional device misuse [Unknown]
  - Off label use [Unknown]
  - Device malfunction [Unknown]

NARRATIVE: CASE EVENT DATE: 20190401
